FAERS Safety Report 9236938 (Version 1)
Quarter: 2013Q2

REPORT INFORMATION
  Report Type: Other
  Country: GB (occurrence: GB)
  Receive Date: 20130417
  Receipt Date: 20130417
  Transmission Date: 20140414
  Serious: Yes (Life-Threatening)
  Sender: FDA-Public Use
  Company Number: GB-ACTAVIS-2013-06519

PATIENT
  Age: 79 Year
  Sex: Female

DRUGS (3)
  1. ACYCLOVIR (UNKNOWN) [Suspect]
     Indication: VARICELLA
     Dosage: 800 MG, FIVE TIMES A DAY
     Route: 048
     Dates: start: 20130219, end: 20130219
  2. IBUPROFEN [Concomitant]
     Indication: PRODUCT USED FOR UNKNOWN INDICATION
     Route: 065
  3. LISINOPRIL [Concomitant]
     Indication: PRODUCT USED FOR UNKNOWN INDICATION
     Route: 065

REACTIONS (1)
  - Syncope [Recovered/Resolved]
